FAERS Safety Report 11383488 (Version 2)
Quarter: 2016Q2

REPORT INFORMATION
  Report Type: Report from Study
  Country: US (occurrence: US)
  Receive Date: 20150814
  Receipt Date: 20160516
  Transmission Date: 20160815
  Serious: Yes (Other)
  Sender: FDA-Public Use
  Company Number: US-MALLINCKRODT-T201503784

PATIENT
  Sex: Female

DRUGS (1)
  1. REPOSITORY CORTICOTROPIN INJECTION [Suspect]
     Active Substance: CORTICOTROPIN
     Indication: GLOMERULONEPHRITIS MEMBRANOUS
     Dosage: 40 UNITS TWICE PER WEEK
     Route: 058
     Dates: start: 20150401

REACTIONS (6)
  - Nausea [Unknown]
  - Pneumonia [Recovering/Resolving]
  - Feeling cold [Unknown]
  - Oedema [Unknown]
  - Dysgeusia [Unknown]
  - Diarrhoea [Unknown]
